FAERS Safety Report 8925203 (Version 2)
Quarter: 2013Q1

REPORT INFORMATION
  Report Type: Spontaneous
  Country: US (occurrence: US)
  Receive Date: 20121126
  Receipt Date: 20130312
  Transmission Date: 20140127
  Serious: Yes (Other)
  Sender: FDA-Public Use
  Company Number: US-BAYER-2012-121493

PATIENT
  Age: 24 Year
  Sex: Female
  Weight: 90.7 kg

DRUGS (2)
  1. YAZ [Suspect]
     Indication: ACNE
     Dosage: UNK
     Dates: start: 2009, end: 2010
  2. YAZ [Suspect]
     Indication: PREMENSTRUAL DYSPHORIC DISORDER

REACTIONS (7)
  - Cholelithiasis [None]
  - Injury [None]
  - Pain [None]
  - Emotional distress [None]
  - Anxiety [None]
  - Psychological trauma [None]
  - Cholecystitis chronic [None]
